FAERS Safety Report 14420951 (Version 2)
Quarter: 2018Q1

REPORT INFORMATION
  Report Type: Report from Study
  Country: US (occurrence: BR)
  Receive Date: 20180122
  Receipt Date: 20180202
  Transmission Date: 20180509
  Serious: Yes (Death, Hospitalization, Other)
  Sender: FDA-Public Use
  Company Number: US-SUNOVION-2018SUN000204

PATIENT
  Sex: Male
  Weight: 74 kg

DRUGS (2)
  1. INDACATEROL AND GLYCOPYRROLATE [Suspect]
     Active Substance: GLYCOPYRROLATE\INDACATEROL MALEATE
     Indication: OXYGEN SATURATION ABNORMAL
  2. INDACATEROL AND GLYCOPYRROLATE [Suspect]
     Active Substance: GLYCOPYRROLATE\INDACATEROL MALEATE
     Indication: BRONCHIAL DISORDER
     Dosage: 1 DF, (INDACATEROL 150 UG/GLYCOPYRRONIUM BROMIDE 50 UG, QD, REGIMEN#1
     Route: 055
     Dates: start: 20171129

REACTIONS (5)
  - Cardio-respiratory arrest [Fatal]
  - Pulmonary oedema [Unknown]
  - Pneumonia [Fatal]
  - Product use in unapproved indication [Unknown]
  - Lung infection [Unknown]
